FAERS Safety Report 12527474 (Version 1)
Quarter: 2016Q3

REPORT INFORMATION
  Report Type: Spontaneous
  Country: VE (occurrence: VE)
  Receive Date: 20160705
  Receipt Date: 20160705
  Transmission Date: 20161109
  Serious: Yes (Hospitalization)
  Sender: FDA-Public Use
  Company Number: VE-PFIZER INC-2016317609

PATIENT
  Age: 37 Year
  Sex: Female

DRUGS (1)
  1. CICLOKAPRON [Suspect]
     Active Substance: TRANEXAMIC ACID
     Indication: MENORRHAGIA

REACTIONS (2)
  - Drug dose omission [Recovered/Resolved]
  - Haemoglobin decreased [Recovered/Resolved]
